FAERS Safety Report 6143822-1 (Version None)
Quarter: 2009Q2

REPORT INFORMATION
  Report Type: 
  Country: None (occurrence: None)
  Receive Date: 20090403
  Receipt Date: 20090331
  Transmission Date: 20091009
  Serious: Yes (Death)
  Sender: FDA-Public Use
  Company Number: PHHY2009US12023

PATIENT
  Age: 36 Year
  Sex: Female

DRUGS (12)
  1. CARBAMAZEPINE [Suspect]
  2. SOMA [Suspect]
  3. DEXTROPROPOXYPHENE [Suspect]
  4. PARACETAMOL [Suspect]
  5. CELEXA [Suspect]
  6. ZYPREXA [Suspect]
     Dosage: 15 MG, QD
  7. ATORVASTATIN CALCIUM [Concomitant]
  8. LANSOPRAZOLE [Concomitant]
  9. FEXOFENADINE [Concomitant]
  10. METRONIDAZOLE [Concomitant]
  11. CLONAZEPAM [Concomitant]
  12. BUSPIRONE HCL [Concomitant]

REACTIONS (1)
  - POISONING [None]
